FAERS Safety Report 23328055 (Version 2)
Quarter: 2024Q1

REPORT INFORMATION
  Report Type: Spontaneous
  Country: US (occurrence: US)
  Receive Date: 20231221
  Receipt Date: 20240226
  Transmission Date: 20240410
  Serious: Yes (Death, Other)
  Sender: FDA-Public Use
  Company Number: US-009507513-2312USA007797

PATIENT
  Sex: Male

DRUGS (1)
  1. KEYTRUDA [Suspect]
     Active Substance: PEMBROLIZUMAB
     Indication: Lung neoplasm malignant
     Dosage: UNK UNK, Q3W
     Route: 042
     Dates: start: 20230816, end: 202310

REACTIONS (3)
  - Malignant neoplasm progression [Fatal]
  - Drug ineffective [Unknown]
  - Hospice care [Unknown]

NARRATIVE: CASE EVENT DATE: 20230101
